FAERS Safety Report 24644518 (Version 2)
Quarter: 2024Q4

REPORT INFORMATION
  Report Type: Report from Study
  Country: AU (occurrence: AU)
  Receive Date: 20241121
  Receipt Date: 20241223
  Transmission Date: 20250114
  Serious: Yes (Hospitalization)
  Sender: ABBVIE
  Company Number: AU-ABBVIE-6010156

PATIENT
  Age: 66 Year
  Sex: Female

DRUGS (1)
  1. HUMIRA [Suspect]
     Active Substance: ADALIMUMAB
     Indication: Crohn^s disease
     Dosage: DRUG STOP DATE: 2024
     Route: 058
     Dates: start: 20240813

REACTIONS (2)
  - Inflammatory marker increased [Not Recovered/Not Resolved]
  - Crohn^s disease [Not Recovered/Not Resolved]
